FAERS Safety Report 5683180-X (Version None)
Quarter: 2008Q1

REPORT INFORMATION
  Report Type: 
  Country: None (occurrence: None)
  Receive Date: 20080327
  Receipt Date: 20080304
  Transmission Date: 20080703
  Serious: No
  Sender: FDA-Public Use
  Company Number: US-BOEHRINGER INGELHEIM GMBH, GERMANY-2008-BP-03284BP

PATIENT
  Sex: Female

DRUGS (4)
  1. ZANTAC 75 [Suspect]
     Indication: DYSPEPSIA
     Dates: start: 20080201
  2. ZANTAC 75 [Suspect]
  3. MULTI-VITAMIN [Concomitant]
  4. VITAMIN E-400 [Concomitant]

REACTIONS (1)
  - ALOPECIA [None]
